FAERS Safety Report 4634080-5 (Version None)
Quarter: 2005Q2

REPORT INFORMATION
  Report Type: 
  Country: None (occurrence: None)
  Receive Date: 20050413
  Receipt Date: 20040309
  Transmission Date: 20051028
  Serious: Yes (Hospitalization, Disabling)
  Sender: FDA-Public Use
  Company Number: CA-GLAXOSMITHKLINE-A0502216A

PATIENT
  Age: 55 Year
  Sex: Female
  Weight: 81.8 kg

DRUGS (5)
  1. AVANDIA [Suspect]
     Indication: DIABETES MELLITUS NON-INSULIN-DEPENDENT
     Dosage: 4MG TWICE PER DAY
     Route: 048
     Dates: start: 20040101, end: 20040201
  2. STEROIDS [Suspect]
     Indication: ANGIONEUROTIC OEDEMA
     Route: 042
     Dates: start: 20040201
  3. PREDNISONE [Suspect]
     Indication: CHRONIC OBSTRUCTIVE AIRWAYS DISEASE EXACERBATED
     Dates: start: 20040201
  4. ENDOCET [Concomitant]
  5. OXYCONTIN [Concomitant]

REACTIONS (18)
  - ANGIONEUROTIC OEDEMA [None]
  - BLOOD GLUCOSE FLUCTUATION [None]
  - CHRONIC OBSTRUCTIVE AIRWAYS DISEASE EXACERBATED [None]
  - COUGH [None]
  - DYSPNOEA [None]
  - FATIGUE [None]
  - HYPERSENSITIVITY [None]
  - HYPOGLYCAEMIA [None]
  - HYPOVENTILATION [None]
  - LOWER RESPIRATORY TRACT INFECTION [None]
  - OEDEMA PERIPHERAL [None]
  - PNEUMONITIS [None]
  - PRURITUS [None]
  - PULMONARY FIBROSIS [None]
  - PULMONARY FUNCTION TEST DECREASED [None]
  - STRIDOR [None]
  - URTICARIA [None]
  - WHEEZING [None]
